FAERS Safety Report 8176923 (Version 2)
Quarter: 2013Q1

REPORT INFORMATION
  Report Type: Report from Study
  Country: DE (occurrence: DE)
  Receive Date: 20111012
  Receipt Date: 20130215
  Transmission Date: 20140127
  Serious: Yes (Hospitalization)
  Sender: FDA-Public Use
  Company Number: PHHO2011DE16632

PATIENT
  Sex: Female

DRUGS (6)
  1. MYFORTIC [Suspect]
     Indication: RENAL TRANSPLANT
     Dosage: 2160 MG, BID
     Route: 048
     Dates: start: 20110905, end: 20110929
  2. MYFORTIC [Suspect]
     Dosage: 720 MG, BID
     Route: 048
     Dates: start: 20110929
  3. SIMULECT [Suspect]
     Indication: RENAL TRANSPLANT
     Dosage: 20 MG, / DAY
     Route: 048
     Dates: start: 20110906
  4. SANDIMMUN OPTORAL [Suspect]
     Indication: RENAL TRANSPLANT
     Dosage: 400 MG, BID
     Route: 048
     Dates: start: 20110905
  5. NO TREATMENT RECEIVED [Suspect]
     Indication: RENAL TRANSPLANT
  6. DECORTIN [Concomitant]
     Indication: RENAL TRANSPLANT
     Dosage: 5 MG, BID
     Route: 048
     Dates: start: 20110905

REACTIONS (2)
  - Soft tissue injury [Not Recovered/Not Resolved]
  - Haematoma [Recovered/Resolved]
